FAERS Safety Report 25335163 (Version 1)
Quarter: 2025Q2

REPORT INFORMATION
  Report Type: Spontaneous
  Country: US (occurrence: US)
  Receive Date: 20250520
  Receipt Date: 20250520
  Transmission Date: 20250717
  Serious: No
  Sender: AJANTA PHARMA USA INC
  Company Number: US-AJANTA-2025AJA00065

PATIENT
  Age: 39 Year
  Sex: Female
  Weight: 300 kg

DRUGS (2)
  1. CHOLESTYRAMINE [Suspect]
     Active Substance: CHOLESTYRAMINE
     Indication: Bowel movement irregularity
     Route: 048
     Dates: start: 20250507, end: 20250507
  2. CHOLESTYRAMINE [Suspect]
     Active Substance: CHOLESTYRAMINE
     Indication: Bowel movement irregularity

REACTIONS (5)
  - Oropharyngeal discomfort [Unknown]
  - Product use complaint [Unknown]
  - Product use in unapproved indication [Unknown]
  - Product solubility abnormal [Unknown]
  - Product physical consistency issue [Unknown]

NARRATIVE: CASE EVENT DATE: 20250507
